FAERS Safety Report 16625863 (Version 1)
Quarter: 2019Q3

REPORT INFORMATION
  Report Type: Spontaneous
  Country: GR (occurrence: GR)
  Receive Date: 20190724
  Receipt Date: 20190724
  Transmission Date: 20191004
  Serious: Yes (Death, Other)
  Sender: FDA-Public Use
  Company Number: GR-BAUSCH-BL-2019-020487

PATIENT
  Sex: Female

DRUGS (1)
  1. METFORMIN HYDROCHLORIDE. [Suspect]
     Active Substance: METFORMIN HYDROCHLORIDE
     Indication: SUICIDE ATTEMPT
     Dosage: TOTAL
     Route: 065

REACTIONS (9)
  - Myocardial ischaemia [Fatal]
  - Overdose [Fatal]
  - Pulmonary oedema [Fatal]
  - Drug abuse [Fatal]
  - Ventricular fibrillation [Fatal]
  - Lactic acidosis [Fatal]
  - Cerebrovascular accident [Fatal]
  - Brain oedema [Fatal]
  - Toxicity to various agents [Fatal]
